FAERS Safety Report 8815742 (Version 1)
Quarter: 2012Q4

REPORT INFORMATION
  Report Type: 
  Country: US (occurrence: US)
  Receive Date: 20120928
  Receipt Date: 20120928
  Transmission Date: 20130627
  Serious: No
  Sender: FDA-Public Use
  Company Number: US-009507513-1209USA007235

PATIENT
  Sex: Female

DRUGS (2)
  1. HYZAAR [Suspect]
     Dosage: 25 mg, UNK
     Route: 048
     Dates: start: 2004
  2. HYDROCHLOROTHIAZIDE/LOSARTAN [Suspect]
     Dosage: UNK

REACTIONS (1)
  - Oedema peripheral [Not Recovered/Not Resolved]
